FAERS Safety Report 9259060 (Version 2)
Quarter: 2013Q2

REPORT INFORMATION
  Report Type: Other
  Country: JP (occurrence: JP)
  Receive Date: 20130426
  Receipt Date: 20130604
  Transmission Date: 20140414
  Serious: Yes (Hospitalization)
  Sender: FDA-Public Use
  Company Number: JP-BRISTOL-MYERS SQUIBB COMPANY-18794875

PATIENT
  Age: 50 Year
  Sex: Female

DRUGS (8)
  1. BYETTA PEN DISPOSABLE [Suspect]
     Indication: TYPE 2 DIABETES MELLITUS
     Dosage: DOSE IS INCREASED : 10 MICROGRAM TWICE A DAY AFTER 9 DAYS.?1.5 HOURS AFTER EACH MEALS.
     Route: 058
     Dates: start: 20111214
  2. CORTRIL [Interacting]
     Indication: HYPOPITUITARISM
     Dosage: BEFORE EACH MEAL.
     Route: 048
  3. THYRADIN S [Concomitant]
     Route: 048
  4. LENDORMIN [Concomitant]
     Route: 048
  5. DEPAKENE [Concomitant]
     Route: 048
  6. METGLUCO [Concomitant]
     Route: 048
  7. CRESTOR [Concomitant]
     Route: 048
  8. DESMOPRESSIN [Concomitant]
     Indication: HYPOPITUITARISM
     Route: 045

REACTIONS (2)
  - Adrenal insufficiency [Recovered/Resolved]
  - Drug interaction [Unknown]
